FAERS Safety Report 23926070 (Version 1)
Quarter: 2024Q2

REPORT INFORMATION
  Report Type: Spontaneous
  Country: US (occurrence: US)
  Receive Date: 20240531
  Receipt Date: 20240531
  Transmission Date: 20240717
  Serious: No
  Sender: FDA-Public Use
  Company Number: US-RADIUS HEALTH INC.-2023US002737

PATIENT

DRUGS (1)
  1. TYMLOS [Suspect]
     Active Substance: ABALOPARATIDE
     Indication: Illness
     Dosage: 80 MCG, DAILY
     Route: 058
     Dates: start: 202211

REACTIONS (6)
  - Confusional state [Unknown]
  - Generalised oedema [Unknown]
  - Headache [Unknown]
  - Arthralgia [Unknown]
  - Bone pain [Unknown]
  - Dizziness [Unknown]
